FAERS Safety Report 6397150-X (Version None)
Quarter: 2009Q4

REPORT INFORMATION
  Report Type: 
  Country: None (occurrence: None)
  Receive Date: 20091012
  Receipt Date: 20091006
  Transmission Date: 20100525
  Serious: Yes (Death, Hospitalization)
  Sender: FDA-Public Use
  Company Number: B0596614A

PATIENT
  Sex: Female

DRUGS (4)
  1. RANIPLEX [Suspect]
     Indication: PREMEDICATION
     Route: 042
     Dates: start: 20090511, end: 20090511
  2. PACLITAXEL [Suspect]
     Indication: BREAST CANCER
     Dosage: 90MG PER DAY
     Route: 042
     Dates: start: 20090511, end: 20090511
  3. POLARAMINE [Suspect]
     Indication: PREMEDICATION
     Dosage: 2.5MG PER DAY
     Route: 042
     Dates: start: 20090511, end: 20090511
  4. METHYLPREDNISOLONE [Suspect]
     Indication: PREMEDICATION
     Dosage: 60MG PER DAY
     Route: 042
     Dates: start: 20090511, end: 20090511

REACTIONS (4)
  - CONFUSIONAL STATE [None]
  - GENERAL PHYSICAL HEALTH DETERIORATION [None]
  - INJECTION SITE ABSCESS [None]
  - PANCYTOPENIA [None]
